FAERS Safety Report 6232522-5 (Version None)
Quarter: 2009Q2

REPORT INFORMATION
  Report Type: 
  Country: None (occurrence: None)
  Receive Date: 20090612
  Receipt Date: 20090602
  Transmission Date: 20091009
  Serious: Yes (Congenital Anomaly)
  Sender: FDA-Public Use
  Company Number: 8028914

PATIENT
  Sex: Female
  Weight: 3.1 kg

DRUGS (5)
  1. KEPPRA [Suspect]
     Indication: EPILEPSY
     Dosage: 400 MG TRP
     Route: 064
  2. KEPPRA [Suspect]
     Indication: EPILEPSY
     Dosage: 2000 MG 2/D PO
     Route: 048
  3. FOLIC ACID [Concomitant]
  4. MULTI-VITAMIN [Concomitant]
  5. LAMICTAL [Concomitant]

REACTIONS (4)
  - DRUG EXPOSURE DURING PREGNANCY [None]
  - LABOUR INDUCTION [None]
  - PREGNANCY [None]
  - UMBILICAL CORD VASCULAR DISORDER [None]
